FAERS Safety Report 7402491-0 (Version None)
Quarter: 2011Q2

REPORT INFORMATION
  Report Type: 
  Country: None (occurrence: None)
  Receive Date: 20110408
  Receipt Date: 20110329
  Transmission Date: 20111010
  Serious: Yes (Other)
  Sender: FDA-Public Use
  Company Number: PHEH2007US06831

PATIENT
  Sex: Female

DRUGS (27)
  1. MEDROXYPROGESTERONE [Suspect]
     Dosage: 2.5 MG, QD
     Route: 048
     Dates: start: 19980301, end: 19991101
  2. SYNTHROID [Concomitant]
     Indication: HYPOTHYROIDISM
  3. ZOLOFT [Concomitant]
     Indication: DEPRESSION
     Dosage: 50 MG, UNK
     Dates: start: 19970101
  4. CENTRUM [Concomitant]
  5. PRESERVISION /USA/ [Concomitant]
  6. ESTRADERM [Suspect]
     Indication: MENOPAUSAL SYMPTOMS
     Dosage: 0.05 MG
     Route: 062
     Dates: start: 19860101, end: 19990601
  7. PROVERA [Suspect]
     Dosage: 2.5 MG QD
     Route: 048
     Dates: start: 19910101, end: 19960101
  8. TUMS [Concomitant]
  9. CALCIUM [Concomitant]
  10. CALTRATE [Concomitant]
  11. SELENIUM [Concomitant]
  12. PROVERA [Suspect]
     Indication: MENOPAUSAL SYMPTOMS
     Dosage: 10 MG, UNK
     Route: 048
     Dates: start: 19830101, end: 19910101
  13. BUTALBITAL [Concomitant]
     Dosage: UNK
  14. VITAMIN B-12 [Concomitant]
  15. ESTRADIOL [Suspect]
     Dosage: 0.5 MG, QD
     Route: 048
     Dates: start: 19990601, end: 19991101
  16. ALPRAZOLAM [Concomitant]
     Indication: ANXIETY
     Dosage: UNK
  17. LEVOXYL [Concomitant]
  18. EMEND [Concomitant]
  19. MEDROXYPROGESTERONE [Suspect]
     Indication: MENOPAUSAL SYMPTOMS
     Dosage: 2.5 MG, QD
     Route: 048
     Dates: start: 19970501, end: 19980301
  20. ESTRADIOL [Suspect]
     Indication: MENOPAUSAL SYMPTOMS
     Dosage: 1 MG, UNK
     Route: 048
     Dates: start: 19990701, end: 19991101
  21. ESTRADIOL [Suspect]
     Dosage: 1 MG, UNK
     Route: 048
     Dates: start: 19991001
  22. BONIVA [Concomitant]
  23. FIORICET [Concomitant]
  24. FOSAMAX [Concomitant]
  25. BUTIBEL [Concomitant]
  26. PRESERVISION /USA/ [Concomitant]
  27. FIORICET [Concomitant]

REACTIONS (21)
  - ENDOMETRIAL CANCER [None]
  - BREAST CANCER [None]
  - OSTEOPENIA [None]
  - ATROPHY [None]
  - VAGINAL HAEMORRHAGE [None]
  - WEIGHT DECREASED [None]
  - FIBROCYSTIC BREAST DISEASE [None]
  - ENDOMETRIAL HYPERPLASIA [None]
  - STRESS [None]
  - ANXIETY [None]
  - VENTRICULAR EXTRASYSTOLES [None]
  - GENITAL PROLAPSE [None]
  - MACULAR DEGENERATION [None]
  - DEPRESSION [None]
  - ANORECTAL DISORDER [None]
  - BREAST MASS [None]
  - UTERINE CYST [None]
  - CHEST PAIN [None]
  - ARTHRALGIA [None]
  - PALPITATIONS [None]
  - CATARACT NUCLEAR [None]
